FAERS Safety Report 9212404 (Version 1)
Quarter: 2013Q2

REPORT INFORMATION
  Report Type: Spontaneous
  Country: IT (occurrence: IT)
  Receive Date: 20130404
  Receipt Date: 20130404
  Transmission Date: 20140414
  Serious: Yes (Hospitalization)
  Sender: FDA-Public Use
  Company Number: IT-BAYER-2013-039805

PATIENT
  Age: 79 Year
  Sex: Female

DRUGS (2)
  1. CARDIOASPIRIN [Suspect]
     Dosage: 100 MG, QD
     Route: 048
     Dates: start: 20100101, end: 20130214
  2. VASEXTEN [Concomitant]
     Indication: HYPERTENSION
     Dosage: DAILY DOSE 10 MG
     Route: 048

REACTIONS (3)
  - Presyncope [Recovering/Resolving]
  - Gastric ulcer haemorrhage [Recovering/Resolving]
  - Anaemia [Recovering/Resolving]
